FAERS Safety Report 7555080-1 (Version None)
Quarter: 2011Q2

REPORT INFORMATION
  Report Type: 
  Country: None (occurrence: None)
  Receive Date: 20110617
  Receipt Date: 20110601
  Transmission Date: 20111010
  Serious: No
  Sender: FDA-Public Use
  Company Number: US-B.I. PHARMACEUTICALS,INC./RIDGEFIELD-2011-BP-11247BP

PATIENT
  Age: 67 Year
  Sex: Male

DRUGS (7)
  1. PRADAXA [Suspect]
     Indication: ATRIAL FIBRILLATION
     Dosage: 300 MG
     Route: 048
     Dates: start: 20110301
  2. ATENOLOL [Concomitant]
     Dosage: 50 MG
  3. BENICAR [Concomitant]
     Dosage: 40 MG
  4. PRADAXA [Suspect]
     Indication: ANTICOAGULANT THERAPY
  5. LIPITOR [Concomitant]
     Dosage: 10 MG
  6. TAMSULOSIN HCL [Concomitant]
     Dosage: 0.4 MG
  7. LEVETIRACETAM [Concomitant]
     Dosage: 1000 MG

REACTIONS (1)
  - JOINT SWELLING [None]
